FAERS Safety Report 4438969-1 (Version None)
Quarter: 2004Q3

REPORT INFORMATION
  Report Type: 
  Country: None (occurrence: None)
  Receive Date: 20040901
  Receipt Date: 20040813
  Transmission Date: 20050211
  Serious: Yes (Hospitalization)
  Sender: FDA-Public Use
  Company Number: US-ROCHE-377904

PATIENT
  Age: 60 Year
  Sex: Male

DRUGS (4)
  1. PEGASYS [Suspect]
     Indication: HEPATITIS C
     Route: 058
     Dates: start: 20030515, end: 20040428
  2. COPEGUS [Suspect]
     Indication: HEPATITIS C
     Route: 048
     Dates: start: 20030515, end: 20040428
  3. TIMOLOL MALEATE [Concomitant]
     Indication: HYPERTENSION
     Route: 048
  4. COVERA-HS [Concomitant]
     Indication: HYPERTENSION
     Route: 048

REACTIONS (1)
  - CORONARY ARTERY OCCLUSION [None]
